FAERS Safety Report 14718670 (Version 1)
Quarter: 2018Q2

REPORT INFORMATION
  Report Type: Spontaneous
  Country: US (occurrence: US)
  Receive Date: 20180405
  Receipt Date: 20180405
  Transmission Date: 20180711
  Serious: No
  Sender: FDA-Public Use
  Company Number: US-BAUSCH-BL-2017-021176

PATIENT
  Age: 56 Year
  Sex: Female
  Weight: 77.18 kg

DRUGS (1)
  1. TRETINOIN GEL 0.01% [Suspect]
     Active Substance: TRETINOIN
     Indication: ACNE
     Dosage: PEA SIZE TRETINOIN WAS APPLIED ON FACE AT NIGHTLY
     Route: 061
     Dates: start: 201705, end: 2017

REACTIONS (3)
  - Product quality issue [Unknown]
  - Medication residue present [Unknown]
  - Drug ineffective [Recovered/Resolved]

NARRATIVE: CASE EVENT DATE: 201705
